FAERS Safety Report 5037051-2 (Version None)
Quarter: 2006Q2

REPORT INFORMATION
  Report Type: 
  Country: None (occurrence: None)
  Receive Date: 20060622
  Receipt Date: 20060615
  Transmission Date: 20061013
  Serious: Yes (Other)
  Sender: FDA-Public Use
  Company Number: 146004USA

PATIENT
  Age: 54 Year
  Sex: Female

DRUGS (3)
  1. FAMOTIDINE [Suspect]
     Dosage: 20 MILLIGRAM
  2. PRAVACHOL [Concomitant]
  3. TRIAMTERENE AND HYDROCHLOROTHIAZID  HARRIS [Concomitant]

REACTIONS (5)
  - CARDIAC ARREST [None]
  - CHEST PAIN [None]
  - EPISTAXIS [None]
  - HYPERTENSION [None]
  - STRESS [None]
